FAERS Safety Report 9721976 (Version 4)
Quarter: 2014Q2

REPORT INFORMATION
  Report Type: Report from Study
  Country: US (occurrence: US)
  Receive Date: 20131202
  Receipt Date: 20140523
  Transmission Date: 20141212
  Serious: Yes (Hospitalization)
  Sender: FDA-Public Use
  Company Number: US-ROCHE-1308850

PATIENT
  Age: 87 Year
  Sex: Female

DRUGS (6)
  1. LUCENTIS [Suspect]
     Indication: AGE-RELATED MACULAR DEGENERATION
     Dosage: RIGHT EYE, 2 SHOTS?MOST RECENT DOSE: 25/SEP/2013
     Route: 065
     Dates: start: 201309
  2. LUCENTIS [Suspect]
     Route: 065
     Dates: start: 20130828, end: 20130925
  3. LIPITOR [Concomitant]
     Indication: BLOOD CHOLESTEROL
     Route: 048
  4. LIPITOR [Concomitant]
     Indication: HYPERCHOLESTEROLAEMIA
  5. ASA [Concomitant]
     Indication: CORONARY ARTERY DISEASE
     Route: 048
  6. PRILOSEC [Concomitant]
     Indication: GASTROOESOPHAGEAL REFLUX DISEASE
     Route: 048

REACTIONS (7)
  - Infection [Unknown]
  - Malaise [Unknown]
  - Abdominal pain lower [Unknown]
  - Asthenia [Unknown]
  - Pelvic pain [Unknown]
  - Abdominal pain [Not Recovered/Not Resolved]
  - Asthenia [Recovering/Resolving]
